FAERS Safety Report 12473976 (Version 1)
Quarter: 2016Q2

REPORT INFORMATION
  Report Type: Spontaneous
  Country: CN (occurrence: CN)
  Receive Date: 20160616
  Receipt Date: 20160616
  Transmission Date: 20160815
  Serious: Yes (Other)
  Sender: FDA-Public Use
  Company Number: CN-FRESENIUS KABI-FK201603647

PATIENT
  Age: 51 Year
  Sex: Female

DRUGS (2)
  1. MITOMYCIN. [Suspect]
     Active Substance: MITOMYCIN
     Indication: OVARIAN EPITHELIAL CANCER RECURRENT
  2. CISPLATIN (MANUFACTURER UNKNOWN) [Suspect]
     Active Substance: CISPLATIN
     Indication: OVARIAN EPITHELIAL CANCER RECURRENT
     Route: 065

REACTIONS (2)
  - Gastroenteritis proteus [Unknown]
  - Gastrointestinal anastomotic leak [Unknown]
